FAERS Safety Report 8916390 (Version 2)
Quarter: 2012Q4

REPORT INFORMATION
  Report Type: 
  Country: BE (occurrence: BE)
  Receive Date: 20121120
  Receipt Date: 20121210
  Transmission Date: 20130627
  Serious: Yes (Other)
  Sender: FDA-Public Use
  Company Number: BE-NOVOPROD-363885

PATIENT
  Age: 90 Year
  Sex: Female
  Weight: 70 kg

DRUGS (6)
  1. NOVOSEVEN [Suspect]
     Indication: ACQUIRED HAEMOPHILIA
     Dosage: 6.3 mg, UNK
     Route: 042
     Dates: start: 20121106, end: 20121206
  2. SOLU-MEDROL [Concomitant]
     Dosage: 80 mg, qd
     Route: 042
     Dates: start: 20121105
  3. L-THYROXINE                        /00068001/ [Concomitant]
     Dosage: 125 ?g, qd
     Route: 048
     Dates: start: 20121105
  4. PANTOMED                           /00178901/ [Concomitant]
     Dosage: 40 mg, qd
     Route: 048
     Dates: start: 20121105
  5. SODIUM CHLORIDE [Concomitant]
     Dosage: 0.5 l, qd
     Route: 042
     Dates: start: 20121105
  6. HALCION [Concomitant]
     Dosage: 0.25 mg, qd
     Route: 048
     Dates: start: 20121105

REACTIONS (5)
  - Loss of consciousness [Recovered/Resolved]
  - Blood pressure systolic increased [Recovered/Resolved]
  - Malaise [Recovered/Resolved]
  - Urine output decreased [Recovered/Resolved]
  - Constipation [Recovered/Resolved]
